FAERS Safety Report 5148461-7 (Version None)
Quarter: 2006Q4

REPORT INFORMATION
  Report Type: 
  Country: None (occurrence: None)
  Receive Date: 20061110
  Receipt Date: 20061018
  Transmission Date: 20070319
  Serious: Yes (Other)
  Sender: FDA-Public Use
  Company Number: GB-MERCK-0610GBR00138

PATIENT
  Age: 38 Year
  Sex: Female
  Weight: 52 kg

DRUGS (4)
  1. SINGULAIR [Suspect]
     Indication: ASTHMA
     Route: 048
     Dates: start: 20060910, end: 20061015
  2. SINGULAIR [Suspect]
     Indication: WHEEZING
     Route: 048
     Dates: start: 20060910, end: 20061015
  3. ALBUTEROL [Concomitant]
     Indication: ASTHMA
     Route: 065
  4. BECLOMETHASONE DIPROPIONATE [Concomitant]
     Indication: ASTHMA
     Route: 065

REACTIONS (4)
  - ANGIONEUROTIC OEDEMA [None]
  - LIP SWELLING [None]
  - PARAESTHESIA ORAL [None]
  - SWELLING FACE [None]
